FAERS Safety Report 18416184 (Version 13)
Quarter: 2023Q1

REPORT INFORMATION
  Report Type: Spontaneous
  Country: US (occurrence: US)
  Receive Date: 20201022
  Receipt Date: 20230320
  Transmission Date: 20230417
  Serious: Yes (Other)
  Sender: FDA-Public Use
  Company Number: US-PFIZER INC-2020326459

PATIENT
  Age: 80 Year
  Sex: Female
  Weight: 77.551 kg

DRUGS (1)
  1. ESTRING [Suspect]
     Active Substance: ESTRADIOL
     Dosage: UNK

REACTIONS (4)
  - Limb operation [Unknown]
  - Back pain [Unknown]
  - Asthenia [Unknown]
  - Device use issue [Unknown]
